FAERS Safety Report 10175042 (Version 3)
Quarter: 2014Q2

REPORT INFORMATION
  Report Type: Spontaneous
  Country: US (occurrence: US)
  Receive Date: 20140515
  Receipt Date: 20140606
  Transmission Date: 20141212
  Serious: Yes (Other)
  Sender: FDA-Public Use
  Company Number: US-JNJFOC-20140506535

PATIENT
  Sex: Female

DRUGS (3)
  1. OLYSIO [Suspect]
     Indication: HEPATITIS C
     Route: 048
     Dates: start: 2014
  2. SOVALDI [Suspect]
     Indication: HEPATITIS C
     Route: 065
     Dates: start: 2014
  3. RIBAVIRIN [Suspect]
     Indication: HEPATITIS C
     Route: 065
     Dates: start: 2014

REACTIONS (3)
  - Ascites [Unknown]
  - Hepatic failure [Unknown]
  - Off label use [Unknown]
